FAERS Safety Report 9928532 (Version 2)
Quarter: 2014Q2

REPORT INFORMATION
  Report Type: Spontaneous
  Country: US (occurrence: US)
  Receive Date: 20140227
  Receipt Date: 20140404
  Transmission Date: 20141212
  Serious: Yes (Hospitalization, Other)
  Sender: FDA-Public Use
  Company Number: US-BAYER-2014-030047

PATIENT
  Age: 21 Year
  Sex: Female
  Weight: 53.52 kg

DRUGS (1)
  1. MIRENA [Suspect]
     Indication: CONTRACEPTION
     Dosage: 20 MCG/24HR, CONT
     Route: 015
     Dates: start: 20090519, end: 20110217

REACTIONS (12)
  - Uterine perforation [None]
  - Device difficult to use [None]
  - Abdominal pain [None]
  - Pelvic pain [None]
  - Injury [None]
  - Emotional distress [None]
  - Device breakage [None]
  - Medical device discomfort [None]
  - Genital haemorrhage [None]
  - Depression [None]
  - Anxiety [None]
  - Fear [None]
